FAERS Safety Report 17625358 (Version 1)
Quarter: 2020Q2

REPORT INFORMATION
  Report Type: Spontaneous
  Country: US (occurrence: US)
  Receive Date: 20200403
  Receipt Date: 20200403
  Transmission Date: 20200713
  Serious: No
  Sender: FDA-Public Use
  Company Number: US-009507513-2003USA009601

PATIENT
  Age: 18 Year
  Sex: Female
  Weight: 88.5 kg

DRUGS (1)
  1. NEXPLANON [Suspect]
     Active Substance: ETONOGESTREL
     Indication: CONTRACEPTION
     Dosage: 1 ROD SUBDERMALLY, EVERY 3 YEARS OLD (ON UNSPECIFIED ARM)
     Route: 059
     Dates: start: 20200312

REACTIONS (3)
  - Implant site infection [Not Recovered/Not Resolved]
  - Implant site discharge [Not Recovered/Not Resolved]
  - Complication of device insertion [Not Recovered/Not Resolved]

NARRATIVE: CASE EVENT DATE: 20200312
